FAERS Safety Report 9835692 (Version 1)
Quarter: 2014Q1

REPORT INFORMATION
  Report Type: Spontaneous
  Country: IT (occurrence: IT)
  Receive Date: 20140122
  Receipt Date: 20140122
  Transmission Date: 20141002
  Serious: Yes (Other)
  Sender: FDA-Public Use
  Company Number: IT-BAYER-2014-007273

PATIENT
  Age: 38 Year
  Sex: Female

DRUGS (1)
  1. ACETYLSALICYLIC ACID (} 100 MG) [Suspect]
     Dosage: 100 MG/DAY

REACTIONS (3)
  - Renal impairment [None]
  - Premature baby [None]
  - Maternal exposure during pregnancy [None]
